FAERS Safety Report 17693313 (Version 1)
Quarter: 2020Q2

REPORT INFORMATION
  Report Type: Spontaneous
  Country: US (occurrence: US)
  Receive Date: 20200420
  Receipt Date: 20200420
  Transmission Date: 20200714
  Serious: Yes (Life-Threatening, Hospitalization)
  Sender: FDA-Public Use
  Company Number: None

PATIENT
  Age: 55 Year
  Sex: Male
  Weight: 105.82 kg

DRUGS (1)
  1. ATEZOLIZUMAB (ATEZOLIZUMAB 60MG/ML INJ.SOLN [Suspect]
     Active Substance: ATEZOLIZUMAB
     Indication: SMALL CELL LUNG CANCER
     Route: 042
     Dates: start: 20190430, end: 20190521

REACTIONS (8)
  - Bronchial secretion retention [None]
  - Neoplasm progression [None]
  - Immune-mediated pneumonitis [None]
  - Cytopenia [None]
  - Pneumonia [None]
  - Atelectasis [None]
  - Respiratory depression [None]
  - Metastatic neoplasm [None]

NARRATIVE: CASE EVENT DATE: 20190611
